FAERS Safety Report 4803666-7 (Version None)
Quarter: 2005Q4

REPORT INFORMATION
  Report Type: 
  Country: None (occurrence: None)
  Receive Date: 20051014
  Receipt Date: 20050930
  Transmission Date: 20060501
  Serious: Yes (Other)
  Sender: FDA-Public Use
  Company Number: 2005RR-00836

PATIENT
  Age: 61 Year
  Sex: Female

DRUGS (2)
  1. FLUOXETINE [Suspect]
     Indication: ANXIETY
     Dosage: 20 MG, QD, ORAL
     Route: 048
     Dates: start: 20050908, end: 20050921
  2. CO-CODAMOL TABLET [Concomitant]

REACTIONS (3)
  - HYPERHIDROSIS [None]
  - PARAESTHESIA ORAL [None]
  - SWELLING FACE [None]
